FAERS Safety Report 12742084 (Version 1)
Quarter: 2016Q3

REPORT INFORMATION
  Report Type: Spontaneous
  Country: US (occurrence: US)
  Receive Date: 20160914
  Receipt Date: 20160914
  Transmission Date: 20161109
  Serious: Yes (Hospitalization)
  Sender: FDA-Public Use
  Company Number: None

PATIENT
  Age: 55 Year
  Sex: Male

DRUGS (1)
  1. GLEEVEC [Suspect]
     Active Substance: IMATINIB MESYLATE
     Indication: LEUKAEMIA
     Route: 048
     Dates: start: 20140408, end: 201508

REACTIONS (8)
  - Vomiting [None]
  - Ascites [None]
  - Asthenia [None]
  - Malnutrition [None]
  - Unevaluable event [None]
  - Dehydration [None]
  - Renal disorder [None]
  - Anaemia [None]

NARRATIVE: CASE EVENT DATE: 20160829
